FAERS Safety Report 18209104 (Version 1)
Quarter: 2020Q3

REPORT INFORMATION
  Report Type: Spontaneous
  Country: US (occurrence: US)
  Receive Date: 20200828
  Receipt Date: 20200828
  Transmission Date: 20201103
  Serious: No
  Sender: FDA-Public Use
  Company Number: US-AMGEN-USASP2020128626

PATIENT
  Age: 70 Year
  Sex: Female

DRUGS (1)
  1. REPATHA [Suspect]
     Active Substance: EVOLOCUMAB
     Indication: HYPERCHOLESTEROLAEMIA
     Dosage: 140 MILLIGRAM
     Route: 065

REACTIONS (5)
  - Traumatic haemorrhage [Unknown]
  - Injury associated with device [Unknown]
  - Accidental exposure to product [Unknown]
  - Device use error [Unknown]
  - Memory impairment [Unknown]

NARRATIVE: CASE EVENT DATE: 20200806
